FAERS Safety Report 6069002-6 (Version None)
Quarter: 2009Q1

REPORT INFORMATION
  Report Type: 
  Country: None (occurrence: None)
  Receive Date: 20090206
  Receipt Date: 20090130
  Transmission Date: 20090719
  Serious: Yes (Other)
  Sender: FDA-Public Use
  Company Number: US-ELI_LILLY_AND_COMPANY-US200901005552

PATIENT
  Sex: Female

DRUGS (3)
  1. BYETTA [Suspect]
     Dosage: 5 UG, 2/D
     Dates: start: 20070101
  2. BYETTA [Suspect]
     Dosage: 10 UG, 2/D
  3. ANTI-DIABETICS [Concomitant]

REACTIONS (7)
  - BLOOD GLUCOSE DECREASED [None]
  - FALL [None]
  - HIP FRACTURE [None]
  - MALAISE [None]
  - NAUSEA [None]
  - UPPER LIMB FRACTURE [None]
  - VOMITING [None]
